FAERS Safety Report 23302619 (Version 3)
Quarter: 2024Q3

REPORT INFORMATION
  Report Type: Spontaneous
  Country: JP (occurrence: None)
  Receive Date: 20231215
  Receipt Date: 20240913
  Transmission Date: 20241017
  Serious: Yes (Death, Other)
  Sender: ASTRAZENECA
  Company Number: 2023A281456

PATIENT
  Age: 55 Year
  Sex: Female

DRUGS (3)
  1. LYNPARZA [Suspect]
     Active Substance: OLAPARIB
     Indication: Malignant peritoneal neoplasm
     Dosage: NUMBER OF SEPARATE DOSAGES UNKNOWN
     Route: 048
  2. LYNPARZA [Suspect]
     Active Substance: OLAPARIB
     Indication: Malignant peritoneal neoplasm
     Dosage: NUMBER OF SEPARATE DOSAGES UNKNOWN
     Route: 048
  3. BEVACIZUMAB [Concomitant]
     Active Substance: BEVACIZUMAB
     Indication: Malignant peritoneal neoplasm

REACTIONS (9)
  - Sepsis [Fatal]
  - Ovarian cancer recurrent [Unknown]
  - Tumour marker increased [Unknown]
  - Ileus [Unknown]
  - Malignant ascites [Unknown]
  - Intestinal obstruction [Unknown]
  - Metastases to peritoneum [Unknown]
  - Ascites [Unknown]
  - Haemoglobin decreased [Unknown]
